FAERS Safety Report 10563054 (Version 1)
Quarter: 2014Q4

REPORT INFORMATION
  Report Type: Spontaneous
  Country: US (occurrence: None)
  Receive Date: 20141103
  Receipt Date: 20141103
  Transmission Date: 20150529
  Serious: Yes (Hospitalization)
  Sender: FDA-Public Use
  Company Number: None

PATIENT
  Age: 60 Year
  Sex: Female
  Weight: 66.23 kg

DRUGS (1)
  1. AZATHIOPRINE. [Suspect]
     Active Substance: AZATHIOPRINE
     Indication: CROHN^S DISEASE
     Dosage: 1 PILL
     Route: 048
     Dates: start: 20141007, end: 20141029

REACTIONS (5)
  - Back pain [None]
  - Pancreatitis [None]
  - Nephrolithiasis [None]
  - Pain [None]
  - Kidney infection [None]

NARRATIVE: CASE EVENT DATE: 20141028
